FAERS Safety Report 8580792 (Version 5)
Quarter: 2013Q4

REPORT INFORMATION
  Report Type: Report from Study
  Country: US (occurrence: US)
  Receive Date: 20120525
  Receipt Date: 20131230
  Transmission Date: 20140711
  Serious: Yes (Disabling)
  Sender: FDA-Public Use
  Company Number: US-NOVOPROD-351695

PATIENT
  Age: 10 Year
  Sex: Male
  Weight: 48.8 kg

DRUGS (2)
  1. IDEG PDS290 [Suspect]
     Indication: TYPE 1 DIABETES MELLITUS
     Dosage: 24 U, QD
     Route: 058
     Dates: start: 20120503
  2. NOVORAPID PENFILL [Suspect]
     Indication: TYPE 1 DIABETES MELLITUS
     Dosage: 57 U, QD
     Route: 058
     Dates: start: 20120503

REACTIONS (4)
  - Headache [Recovered/Resolved]
  - Hypoglycaemia [None]
  - Rhinitis allergic [None]
  - No therapeutic response [None]
